FAERS Safety Report 13893522 (Version 3)
Quarter: 2017Q3

REPORT INFORMATION
  Report Type: Spontaneous
  Country: CN (occurrence: CN)
  Receive Date: 20170822
  Receipt Date: 20170912
  Transmission Date: 20171127
  Serious: Yes (Hospitalization)
  Sender: FDA-Public Use
  Company Number: CN-ARALEZ PHARMACEUTICALS R+D INC.-2017-ARA-000174

PATIENT
  Age: 68 Year
  Sex: Male

DRUGS (13)
  1. LIPITOR [Concomitant]
     Active Substance: ATORVASTATIN CALCIUM
     Indication: HYPERLIPIDAEMIA
  2. TRIMETAZIDINE [Concomitant]
     Active Substance: TRIMETAZIDINE
     Indication: CARDIAC DISORDER
  3. METOPROLOL SUCCINATE. [Suspect]
     Active Substance: METOPROLOL SUCCINATE
     Indication: PRODUCT USED FOR UNKNOWN INDICATION
     Dosage: 47.5 MG IN THE MORNING AND 23.75 MG (HALF TABLET OF 47.5 MG) AT NIGHT
     Route: 048
     Dates: start: 2007
  4. DIOVAN [Concomitant]
     Active Substance: VALSARTAN
     Indication: HYPERTENSION
  5. ZOLADEX [Suspect]
     Active Substance: GOSERELIN ACETATE
     Indication: PROSTATE CANCER
     Dosage: 3.6 MG, Q4WKS
     Route: 058
     Dates: start: 20170715
  6. HARNAL [Concomitant]
     Active Substance: TAMSULOSIN HYDROCHLORIDE
     Indication: BENIGN PROSTATIC HYPERPLASIA
  7. FINASTERIDE. [Concomitant]
     Active Substance: FINASTERIDE
     Indication: SWELLING
     Dosage: AT NOON
  8. MUSCOSTA [Concomitant]
     Indication: GASTRIC DISORDER
  9. MECOBALAMIN [Concomitant]
     Active Substance: METHYLCOBALAMIN
     Indication: SPINAL PAIN
  10. CASODEX [Suspect]
     Active Substance: BICALUTAMIDE
     Indication: PROSTATE CANCER
     Dosage: 50 MG, QD
     Route: 048
     Dates: start: 201707
  11. ADALAT [Concomitant]
     Active Substance: NIFEDIPINE
     Indication: PRODUCT USED FOR UNKNOWN INDICATION
     Dosage: UNK
  12. PLETAAL [Concomitant]
     Active Substance: CILOSTAZOL
     Indication: ANTICOAGULANT THERAPY
     Dosage: UNK
     Dates: start: 2007
  13. HYTRINE [Concomitant]
     Active Substance: TERAZOSIN HYDROCHLORIDE
     Indication: DYSURIA
     Dosage: AT NIGHT

REACTIONS (13)
  - Hepatic pain [Unknown]
  - Investigation abnormal [Unknown]
  - Abdominal pain upper [Unknown]
  - Hypertension [Unknown]
  - Benign prostatic hyperplasia [Unknown]
  - Pain of skin [Recovering/Resolving]
  - Pain [Unknown]
  - Palpitations [Unknown]
  - Prostate cancer [Unknown]
  - Nasopharyngitis [Unknown]
  - Paraesthesia [Unknown]
  - Prostatitis [Unknown]
  - Venous occlusion [Unknown]

NARRATIVE: CASE EVENT DATE: 2012
